FAERS Safety Report 19208096 (Version 3)
Quarter: 2021Q2

REPORT INFORMATION
  Report Type: Report from Study
  Country: US (occurrence: US)
  Receive Date: 20210503
  Receipt Date: 20210521
  Transmission Date: 20210717
  Serious: Yes (Other)
  Sender: FDA-Public Use
  Company Number: US-CELGENEUS-USA-20201201923

PATIENT
  Age: 71 Year
  Sex: Female
  Weight: 62 kg

DRUGS (21)
  1. CYCLOPHOSPHAMIDE. [Suspect]
     Active Substance: CYCLOPHOSPHAMIDE
     Indication: B-CELL LYMPHOMA
     Dosage: 300 MILLIGRAM/SQ. METER
     Route: 041
     Dates: start: 20201124, end: 20201126
  2. RITUXIMAB. [Concomitant]
     Active Substance: RITUXIMAB
     Indication: B-CELL LYMPHOMA
     Dosage: 375 MILLIGRAM/SQ. METER
     Route: 041
     Dates: start: 20201028, end: 20201028
  3. ALLOPURINOL. [Concomitant]
     Active Substance: ALLOPURINOL
     Indication: PROPHYLAXIS
     Dosage: 300 MILLIGRAM
     Route: 048
     Dates: start: 20201124, end: 20201129
  4. GENTEAL TEARS (MILD) [Concomitant]
     Active Substance: DEXTRAN 70\HYPROMELLOSE 2910 (4000 MPA.S)
     Indication: VISION BLURRED
     Route: 065
     Dates: start: 20201126
  5. PEGFILGRASTIM [Concomitant]
     Active Substance: PEGFILGRASTIM
     Indication: PROPHYLAXIS
     Dosage: 6 X 10^6 ORGANISMS/MG
     Route: 058
     Dates: start: 20201101, end: 20201101
  6. ONDANSETRON [Concomitant]
     Active Substance: ONDANSETRON
     Dosage: 24 MILLIGRAM
     Route: 048
     Dates: start: 20201124, end: 20201126
  7. FUROSEMIDE. [Concomitant]
     Active Substance: FUROSEMIDE
     Indication: GENERALISED OEDEMA
     Route: 041
     Dates: start: 20201125
  8. MAGNESIUM SULFATE. [Concomitant]
     Active Substance: MAGNESIUM SULFATE
     Indication: HYPOMAGNESAEMIA
     Route: 041
     Dates: start: 20201125
  9. FLUDARABINE [Suspect]
     Active Substance: FLUDARABINE PHOSPHATE
     Indication: B-CELL LYMPHOMA
     Dosage: 24 MILLIGRAM/SQ. METER
     Route: 041
     Dates: start: 20201124, end: 20201126
  10. ALTEPLASE. [Concomitant]
     Active Substance: ALTEPLASE
     Route: 041
     Dates: start: 20201124, end: 20201124
  11. FAMOTIDINE. [Concomitant]
     Active Substance: FAMOTIDINE
     Indication: PROPHYLAXIS
     Dosage: 40 MILLIGRAM
     Route: 048
     Dates: start: 20201124, end: 20210120
  12. FUROSEMIDE. [Concomitant]
     Active Substance: FUROSEMIDE
     Indication: PROPHYLAXIS
     Dosage: 20 MILLIGRAM
     Route: 041
     Dates: start: 20201125, end: 20201127
  13. KETOTIFEN [Concomitant]
     Active Substance: KETOTIFEN
     Indication: VISION BLURRED
     Dosage: 2 DROPS
     Route: 065
     Dates: start: 20201126
  14. IFOSFAMIDE. [Concomitant]
     Active Substance: IFOSFAMIDE
     Indication: B-CELL LYMPHOMA
     Dosage: 5000 MILLIGRAM/SQ. METER
     Route: 041
     Dates: start: 20201029, end: 20201031
  15. ALTEPLASE. [Concomitant]
     Active Substance: ALTEPLASE
     Indication: EMBOLISM
     Route: 041
     Dates: start: 20201118, end: 20201118
  16. FOSAPREPITANT [Concomitant]
     Active Substance: FOSAPREPITANT
     Indication: PROPHYLAXIS OF NAUSEA AND VOMITING
     Dosage: 150 MILLIGRAM
     Route: 041
     Dates: start: 20201124, end: 20201124
  17. ETOPOSIDE. [Concomitant]
     Active Substance: ETOPOSIDE
     Indication: B-CELL LYMPHOMA
     Dosage: 100 MILLIGRAM/SQ. METER
     Route: 041
     Dates: start: 20201028, end: 20201030
  18. CARBOPLATIN. [Concomitant]
     Active Substance: CARBOPLATIN
     Indication: B-CELL LYMPHOMA
     Dosage: 438.5 MILLIGRAM
     Route: 041
     Dates: start: 20201029, end: 20201029
  19. ONDANSETRON [Concomitant]
     Active Substance: ONDANSETRON
     Indication: PROPHYLAXIS OF NAUSEA AND VOMITING
     Dosage: 2 MILLIGRAM
     Route: 041
     Dates: start: 20201118, end: 20201118
  20. JCAR017 [Suspect]
     Active Substance: LISOCABTAGENE MARALEUCEL
     Indication: B-CELL LYMPHOMA
     Dosage: 1 X 10^8 CAR + T CELLS
     Route: 041
     Dates: start: 20201201, end: 20201201
  21. ENOXAPARIN [Concomitant]
     Active Substance: ENOXAPARIN
     Indication: EMBOLISM
     Route: 058
     Dates: start: 20201120, end: 20201120

REACTIONS (2)
  - Lymphopenia [Recovered/Resolved]
  - Neutropenia [Recovered/Resolved]

NARRATIVE: CASE EVENT DATE: 20201201
